FAERS Safety Report 4819115-9 (Version None)
Quarter: 2005Q4

REPORT INFORMATION
  Report Type: 
  Country: None (occurrence: None)
  Receive Date: 20051031
  Receipt Date: 20050816
  Transmission Date: 20060501
  Serious: No
  Sender: FDA-Public Use
  Company Number: 2005PV001082

PATIENT
  Age: 54 Year
  Sex: Female
  Weight: 59.4212 kg

DRUGS (4)
  1. SYMLIN [Suspect]
     Indication: DIABETES MELLITUS INSULIN-DEPENDENT
     Dosage: 60 MCG, BID; SC
     Route: 058
     Dates: start: 20050705
  2. SYNTHROID [Concomitant]
  3. LIPITOR [Concomitant]
  4. PREMARIN [Concomitant]

REACTIONS (2)
  - BLOOD GLUCOSE FLUCTUATION [None]
  - WEIGHT DECREASED [None]
